FAERS Safety Report 10086823 (Version 1)
Quarter: 2014Q2

REPORT INFORMATION
  Report Type: Spontaneous
  Country: US (occurrence: US)
  Receive Date: 20140418
  Receipt Date: 20140418
  Transmission Date: 20141212
  Serious: Yes (Other)
  Sender: FDA-Public Use
  Company Number: US-GLAXOSMITHKLINE-A1069875A

PATIENT
  Age: 57 Year
  Sex: Female

DRUGS (1)
  1. ADVAIR [Suspect]
     Indication: RESPIRATORY DISORDER
     Route: 055
     Dates: start: 20110427

REACTIONS (3)
  - Road traffic accident [Unknown]
  - Thermal burn [Unknown]
  - Sternal fracture [Unknown]
